FAERS Safety Report 19454137 (Version 1)
Quarter: 2021Q2

REPORT INFORMATION
  Report Type: Spontaneous
  Country: US (occurrence: US)
  Receive Date: 20210623
  Receipt Date: 20210623
  Transmission Date: 20210717
  Serious: Yes (Hospitalization, Other)
  Sender: FDA-Public Use
  Company Number: US-FRESENIUS KABI-FK202106328

PATIENT
  Age: 64 Year
  Sex: Female
  Weight: 50.3 kg

DRUGS (4)
  1. IRINOTECAN [Suspect]
     Active Substance: IRINOTECAN
     Indication: CHOLANGIOCARCINOMA
     Dosage: NANOLIPOSOMAL IRINOTECAN ?STATUS: CONTINUING
     Route: 042
     Dates: start: 20201019
  2. FLUOROURACIL (MANUFACTURER UNKNOWN) [Suspect]
     Active Substance: FLUOROURACIL
     Indication: CHOLANGIOCARCINOMA
     Dosage: FLUOROURACIL (5FU) ?STATUS: CONTINUING
     Route: 042
     Dates: start: 20201019
  3. NIVOLUMAB [Suspect]
     Active Substance: NIVOLUMAB
     Indication: CHOLANGIOCARCINOMA
     Dosage: STATUS: CONTINUING
     Route: 042
     Dates: start: 20201019
  4. FOLINIC ACID [Suspect]
     Active Substance: LEUCOVORIN
     Indication: CHOLANGIOCARCINOMA
     Dosage: STATUS: CONTINUING
     Route: 042
     Dates: start: 20201019

REACTIONS (2)
  - Hyperglycaemia [Recovered/Resolved with Sequelae]
  - Diabetes mellitus [Unknown]

NARRATIVE: CASE EVENT DATE: 20210430
